FAERS Safety Report 20198266 (Version 1)
Quarter: 2021Q4

REPORT INFORMATION
  Report Type: Spontaneous
  Country: TW (occurrence: TW)
  Receive Date: 20211217
  Receipt Date: 20211217
  Transmission Date: 20220303
  Serious: Yes (Other)
  Sender: FDA-Public Use
  Company Number: TW-BAXTER-2021BAX040663

PATIENT

DRUGS (1)
  1. TISSEEL [Suspect]
     Active Substance: FIBRINOGEN HUMAN\THROMBIN HUMAN
     Indication: Thyroidectomy
     Dosage: TISSEEL 2 ML
     Route: 065
     Dates: start: 202111, end: 202111

REACTIONS (4)
  - Reversible airways obstruction [Unknown]
  - Mass [Recovered/Resolved]
  - Erythema [Unknown]
  - C-reactive protein increased [Unknown]

NARRATIVE: CASE EVENT DATE: 20211101
